FAERS Safety Report 8697985 (Version 3)
Quarter: 2013Q1

REPORT INFORMATION
  Report Type: Spontaneous
  Country: US (occurrence: US)
  Receive Date: 20120801
  Receipt Date: 20130212
  Transmission Date: 20140127
  Serious: Yes (Hospitalization)
  Sender: FDA-Public Use
  Company Number: PHEH2012US014913

PATIENT
  Sex: Female
  Weight: 61.68 kg

DRUGS (1)
  1. GILENYA [Suspect]
     Indication: MULTIPLE SCLEROSIS
     Dosage: 0.5 MG, QD
     Route: 048
     Dates: start: 20110310

REACTIONS (4)
  - Nephrolithiasis [Recovering/Resolving]
  - Kidney infection [Recovering/Resolving]
  - Bacterial infection [Recovering/Resolving]
  - Feeling abnormal [Unknown]
